FAERS Safety Report 8407692 (Version 3)
Quarter: 2013Q1

REPORT INFORMATION
  Report Type: Spontaneous
  Country: IT (occurrence: IT)
  Receive Date: 20120215
  Receipt Date: 20130131
  Transmission Date: 20140127
  Serious: Yes (Other)
  Sender: FDA-Public Use
  Company Number: PHHY2012IT011568

PATIENT
  Age: 74 Year
  Sex: Male

DRUGS (3)
  1. TASIGNA [Suspect]
     Indication: CHRONIC MYELOID LEUKAEMIA
     Dosage: 800 MG, DAILY
     Route: 048
     Dates: start: 20110413, end: 20111221
  2. SINTROM [Concomitant]
     Dosage: 4 MG, UNK
     Route: 048
     Dates: start: 20091210, end: 20120201
  3. CORDARONE [Concomitant]
     Dosage: 200 MG, DAILY
     Route: 048
     Dates: start: 20110413

REACTIONS (4)
  - Peripheral arterial occlusive disease [Unknown]
  - Intermittent claudication [Unknown]
  - Hyperglycaemia [Unknown]
  - Hypercholesterolaemia [Unknown]
